FAERS Safety Report 4590284-1 (Version None)
Quarter: 2005Q1

REPORT INFORMATION
  Report Type: 
  Country: None (occurrence: None)
  Receive Date: 20050218
  Receipt Date: 20050218
  Transmission Date: 20050727
  Serious: Yes (Death, Other)
  Sender: FDA-Public Use
  Company Number: None

PATIENT

DRUGS (8)
  1. CEFTRIAXONE [Suspect]
     Indication: INTERVERTEBRAL DISCITIS
     Dosage: 2 GM DAY IV
     Route: 042
     Dates: start: 20050201, end: 20050211
  2. ENOXAPARIN [Suspect]
  3. GABAPENTIN [Suspect]
  4. ONDANSETRON [Suspect]
  5. APAP TAB [Suspect]
  6. HYDROXYZINE [Suspect]
  7. CLONIDINE [Suspect]
  8. PERCOCET-10 [Suspect]

REACTIONS (10)
  - ACIDOSIS [None]
  - BODY TEMPERATURE INCREASED [None]
  - DEHYDRATION [None]
  - HAEMOLYTIC ANAEMIA [None]
  - HEART RATE INCREASED [None]
  - INTERVERTEBRAL DISCITIS [None]
  - MULTI-ORGAN FAILURE [None]
  - RENAL FAILURE [None]
  - RESPIRATORY FAILURE [None]
  - SEPSIS [None]
